FAERS Safety Report 6931386-1 (Version None)
Quarter: 2010Q3

REPORT INFORMATION
  Report Type: 
  Country: None (occurrence: None)
  Receive Date: 20100819
  Receipt Date: 20100809
  Transmission Date: 20110219
  Serious: Yes (Other)
  Sender: FDA-Public Use
  Company Number: US-JNJFOC-20100605527

PATIENT
  Sex: Female

DRUGS (4)
  1. STELARA [Suspect]
     Indication: PSORIASIS
     Route: 058
  2. LAMICTAL [Concomitant]
  3. LEXAPRO [Concomitant]
  4. ADDERALL 10 [Concomitant]

REACTIONS (2)
  - CONVULSION [None]
  - FATIGUE [None]
